FAERS Safety Report 8847279 (Version 1)
Quarter: 2012Q4

REPORT INFORMATION
  Report Type: 
  Country: None (occurrence: None)
  Receive Date: 20121018
  Receipt Date: 20121018
  Transmission Date: 20130627
  Serious: Yes (Other)
  Sender: FDA-Public Use
  Company Number: RS-ROCHE-1145506

PATIENT
  Age: 25 Year
  Sex: Female
  Weight: 60 kg

DRUGS (1)
  1. ISOTRETINOIN [Suspect]
     Indication: ACNE
     Route: 048
     Dates: start: 20071101, end: 20080501

REACTIONS (3)
  - Disturbance in attention [Recovering/Resolving]
  - Anxiety [Recovering/Resolving]
  - Abnormal behaviour [Recovering/Resolving]
